FAERS Safety Report 8161569-7 (Version None)
Quarter: 2012Q1

REPORT INFORMATION
  Report Type: 
  Country: None (occurrence: None)
  Receive Date: 20120224
  Receipt Date: 20120215
  Transmission Date: 20120608
  Serious: Yes (Death, Other)
  Sender: FDA-Public Use
  Company Number: JP-GENZYME-THYM-1001758

PATIENT
  Sex: Female
  Weight: 77 kg

DRUGS (16)
  1. METHYLPREDNISOLONE [Concomitant]
     Indication: PROPHYLAXIS AGAINST GRAFT VERSUS HOST DISEASE
     Dosage: UNK
     Route: 065
     Dates: start: 20091001, end: 20091015
  2. TACROLIMUS [Concomitant]
     Indication: PROPHYLAXIS AGAINST GRAFT VERSUS HOST DISEASE
     Dosage: UNK
     Route: 065
     Dates: start: 20091010, end: 20091015
  3. MEROPENEM [Concomitant]
     Indication: STAPHYLOCOCCAL SEPSIS
     Dosage: UNK
     Route: 065
     Dates: start: 20091004, end: 20091012
  4. GANCICLOVIR [Concomitant]
     Indication: BONE MARROW CONDITIONING REGIMEN
     Dosage: UNK
     Route: 065
     Dates: start: 20091008, end: 20091012
  5. LANSOPRAZOLE [Concomitant]
     Indication: PROPHYLAXIS AGAINST GRAFT VERSUS HOST DISEASE
     Dosage: UNK
     Route: 065
     Dates: start: 20091007, end: 20091016
  6. MICAFUNGIN SODIUM [Concomitant]
     Indication: STAPHYLOCOCCAL SEPSIS
     Dosage: UNK
     Route: 065
     Dates: start: 20091004, end: 20091015
  7. PLATELETS [Concomitant]
     Indication: ACUTE MYELOID LEUKAEMIA
     Dosage: UNK
     Route: 065
     Dates: start: 20091001, end: 20091016
  8. THYMOGLOBULIN [Suspect]
     Indication: BONE MARROW CONDITIONING REGIMEN
     Dosage: 70 MG, QD
     Route: 042
     Dates: start: 20091010, end: 20091012
  9. ALBUMIN (HUMAN) [Concomitant]
     Indication: INFECTION PROPHYLAXIS
     Dosage: UNK
     Route: 065
     Dates: start: 20091006, end: 20091015
  10. HUMAN RED BLOOD CELLS [Concomitant]
     Indication: ACUTE MYELOID LEUKAEMIA
     Dosage: UNK
     Route: 065
     Dates: start: 20091001, end: 20091014
  11. THYMOGLOBULIN [Suspect]
     Indication: ACUTE MYELOID LEUKAEMIA
  12. ETOPOSIDE [Concomitant]
     Indication: BONE MARROW CONDITIONING REGIMEN
     Dosage: UNK
     Route: 065
     Dates: start: 20091003, end: 20091004
  13. CYTARABINE [Concomitant]
     Indication: BONE MARROW CONDITIONING REGIMEN
     Dosage: UNK
     Route: 065
     Dates: start: 20091005, end: 20091008
  14. VANCOMYCIN HYDROCHLORIDE [Concomitant]
     Indication: STAPHYLOCOCCAL SEPSIS
     Dosage: UNK
     Route: 065
     Dates: start: 20091004, end: 20091012
  15. FLUDARABINE PHOSPHATE [Concomitant]
     Indication: BONE MARROW CONDITIONING REGIMEN
     Dosage: UNK
     Route: 065
     Dates: start: 20091005, end: 20091010
  16. MELPHALAN [Concomitant]
     Indication: BONE MARROW CONDITIONING REGIMEN
     Dosage: UNK
     Route: 065
     Dates: start: 20091009, end: 20091010

REACTIONS (2)
  - RENAL FAILURE [None]
  - ACUTE RESPIRATORY DISTRESS SYNDROME [None]
